FAERS Safety Report 15125627 (Version 2)
Quarter: 2018Q3

REPORT INFORMATION
  Report Type: Spontaneous
  Country: US (occurrence: US)
  Receive Date: 20180710
  Receipt Date: 20180723
  Transmission Date: 20181010
  Serious: No
  Sender: FDA-Public Use
  Company Number: US-MYLANLABS-2018M1046339

PATIENT
  Sex: Female
  Weight: 54 kg

DRUGS (3)
  1. ESTRADIOL TRANSDERMAL SYSTEM [Suspect]
     Active Substance: ESTRADIOL
     Indication: PRODUCT USED FOR UNKNOWN INDICATION
     Dosage: UNK UNK, QW
     Route: 062
     Dates: start: 201711
  2. EFFEXOR [Concomitant]
     Active Substance: VENLAFAXINE HYDROCHLORIDE
     Indication: PRODUCT USED FOR UNKNOWN INDICATION
     Dosage: 75 MG, QD
  3. KLONOPIN [Concomitant]
     Active Substance: CLONAZEPAM
     Indication: PRODUCT USED FOR UNKNOWN INDICATION
     Dosage: 1 MG, PM

REACTIONS (9)
  - Wrong technique in product usage process [Unknown]
  - Product quality issue [Unknown]
  - Malaise [Not Recovered/Not Resolved]
  - Drug effect decreased [Not Recovered/Not Resolved]
  - Drug dose omission [Unknown]
  - Application site swelling [Not Recovered/Not Resolved]
  - Hot flush [Not Recovered/Not Resolved]
  - Product adhesion issue [Unknown]
  - Application site pain [Not Recovered/Not Resolved]
